FAERS Safety Report 23919847 (Version 1)
Quarter: 2024Q2

REPORT INFORMATION
  Report Type: Spontaneous
  Country: US (occurrence: None)
  Receive Date: 20240529
  Receipt Date: 20240529
  Transmission Date: 20240716
  Serious: Yes (Other)
  Sender: FDA-Public Use
  Company Number: None

PATIENT
  Age: 67 Year
  Sex: Female

DRUGS (1)
  1. EFFEXOR [Suspect]
     Active Substance: VENLAFAXINE HYDROCHLORIDE
     Indication: Depression
     Dates: start: 20000101, end: 20240502

REACTIONS (10)
  - Drug withdrawal syndrome [None]
  - Nightmare [None]
  - Hallucination [None]
  - Myalgia [None]
  - Muscle spasms [None]
  - Insomnia [None]
  - Dizziness [None]
  - Nausea [None]
  - Electric shock sensation [None]
  - Tremor [None]

NARRATIVE: CASE EVENT DATE: 20240502
